FAERS Safety Report 7163312-7 (Version None)
Quarter: 2010Q4

REPORT INFORMATION
  Report Type: 
  Country: None (occurrence: None)
  Receive Date: 20101215
  Receipt Date: 20100326
  Transmission Date: 20110411
  Serious: Yes (Other)
  Sender: FDA-Public Use
  Company Number: NO-PFIZER INC-2010039448

PATIENT
  Age: 90 Year
  Sex: Female

DRUGS (3)
  1. LYRICA [Suspect]
     Indication: HEADACHE
     Dosage: UNK
  2. LYRICA [Suspect]
     Indication: NEURALGIA
  3. CIPRALEX [Concomitant]
     Indication: ANXIETY
     Dosage: UNK

REACTIONS (3)
  - DEMENTIA ALZHEIMER'S TYPE [None]
  - VISION BLURRED [None]
  - WEIGHT INCREASED [None]
